FAERS Safety Report 5283759-3 (Version None)
Quarter: 2007Q1

REPORT INFORMATION
  Report Type: 
  Country: None (occurrence: None)
  Receive Date: 20061226
  Receipt Date: 20060307
  Transmission Date: 20070707
  Serious: Yes (Life-Threatening, Hospitalization, Other)
  Sender: FDA-Public Use
  Company Number: WAES 0603USA01432

PATIENT
  Age: 74 Year
  Sex: Female

DRUGS (5)
  1. ZETIA [Suspect]
     Indication: BLOOD CHOLESTEROL INCREASED
     Dosage: 10 MG/DAILY/PO
     Route: 048
     Dates: start: 20050601, end: 20050728
  2. TYLENOL [Concomitant]
  3. ZESTRIL [Concomitant]
  4. ASPIRIN [Concomitant]
  5. ATENOLOL [Concomitant]

REACTIONS (1)
  - PANCREATITIS ACUTE [None]
